FAERS Safety Report 16255880 (Version 1)
Quarter: 2019Q2

REPORT INFORMATION
  Report Type: Spontaneous
  Country: US (occurrence: US)
  Receive Date: 20190430
  Receipt Date: 20190430
  Transmission Date: 20190711
  Serious: No
  Sender: FDA-Public Use
  Company Number: US-PFIZER INC-2018262500

PATIENT
  Age: 69 Year
  Sex: Male
  Weight: 83.9 kg

DRUGS (4)
  1. LYRICA [Suspect]
     Active Substance: PREGABALIN
     Indication: PAIN
     Dosage: 600 MG, DAILY
  2. LYRICA [Suspect]
     Active Substance: PREGABALIN
     Indication: HEMIANOPIA HOMONYMOUS
     Dosage: 800 MG, UNK
  3. LYRICA [Suspect]
     Active Substance: PREGABALIN
     Indication: ARTERIOVENOUS MALFORMATION
     Dosage: 200 MG, 3X/DAY (TAKE ONE CAPSULE THREE TIMES DAILY)
     Route: 048
     Dates: start: 2017
  4. LYRICA [Suspect]
     Active Substance: PREGABALIN
     Dosage: 400 MG, DAILY

REACTIONS (3)
  - Prescribed overdose [Unknown]
  - Drug ineffective for unapproved indication [Unknown]
  - Intentional product use issue [Unknown]
